FAERS Safety Report 8504933-6 (Version None)
Quarter: 2012Q3

REPORT INFORMATION
  Report Type: 
  Country: None (occurrence: None)
  Receive Date: 20120712
  Receipt Date: 20120709
  Transmission Date: 20120928
  Serious: Yes (Other)
  Sender: FDA-Public Use
  Company Number: PHFR2012GB003922

PATIENT
  Age: 14 Year
  Sex: Male

DRUGS (3)
  1. TEGRETOL [Suspect]
     Route: 048
     Dates: start: 20120301
  2. TEGRETOL [Suspect]
     Dosage: 1200 MG, DAILY
     Route: 048
  3. TEGRETOL [Suspect]
     Dosage: 1000 MG, DAILY
     Route: 048
     Dates: start: 20120301

REACTIONS (6)
  - DIPLOPIA [None]
  - FEELING DRUNK [None]
  - MALAISE [None]
  - STRABISMUS [None]
  - VISION BLURRED [None]
  - ANXIETY [None]
